FAERS Safety Report 7783155-0 (Version None)
Quarter: 2011Q3

REPORT INFORMATION
  Report Type: 
  Country: None (occurrence: None)
  Receive Date: 20110928
  Receipt Date: 20110922
  Transmission Date: 20111222
  Serious: Yes (Death, Other)
  Sender: FDA-Public Use
  Company Number: US-BRISTOL-MYERS SQUIBB COMPANY-15710841

PATIENT
  Age: 73 Year
  Sex: Male

DRUGS (1)
  1. SPRYCEL [Suspect]
     Indication: CHRONIC MYELOID LEUKAEMIA
     Dosage: INTIALLY RECEIVED 70 MG BID,DOSE REDUCED TO 100 MG DAILY,HELD
     Route: 048
     Dates: start: 20060101

REACTIONS (3)
  - FULL BLOOD COUNT DECREASED [None]
  - PULMONARY HYPERTENSION [None]
  - DEATH [None]
